FAERS Safety Report 6974523-5 (Version None)
Quarter: 2010Q3

REPORT INFORMATION
  Report Type: 
  Country: None (occurrence: None)
  Receive Date: 20100909
  Receipt Date: 20100909
  Transmission Date: 20110219
  Serious: Yes (Hospitalization)
  Sender: FDA-Public Use
  Company Number: None

PATIENT
  Age: 61 Year
  Sex: Female
  Weight: 45.6727 kg

DRUGS (8)
  1. DECITABINE 0.2MG/KG [Suspect]
     Indication: MYELODYSPLASTIC SYNDROME
     Dosage: 20.2MG 2X/WK SUB-Q INJ.
     Route: 058
     Dates: start: 20100809, end: 20100831
  2. CIPRO [Concomitant]
  3. XANAX [Concomitant]
  4. NORVASC [Concomitant]
  5. ZOLPIDEM [Concomitant]
  6. ZYRTEC [Concomitant]
  7. PRILOSEC [Concomitant]
  8. ULTRAM [Concomitant]

REACTIONS (5)
  - ABDOMINAL PAIN [None]
  - HEADACHE [None]
  - NAUSEA [None]
  - PYREXIA [None]
  - VOMITING [None]
